FAERS Safety Report 20607630 (Version 1)
Quarter: 2022Q1

REPORT INFORMATION
  Report Type: Spontaneous
  Country: US (occurrence: US)
  Receive Date: 20220317
  Receipt Date: 20220317
  Transmission Date: 20220423
  Serious: No
  Sender: FDA-Public Use
  Company Number: US-ENDO PHARMACEUTICALS INC-2021-011711

PATIENT
  Sex: Male

DRUGS (1)
  1. XIAFLEX [Suspect]
     Active Substance: COLLAGENASE CLOSTRIDIUM HISTOLYTICUM
     Indication: Dupuytren^s contracture
     Dosage: UNK UNKNOWN, (TREATMENT ONE)
     Route: 065
     Dates: start: 20210830

REACTIONS (5)
  - Nodule [Unknown]
  - Tendon disorder [Unknown]
  - Tendon pain [Unknown]
  - Dupuytren^s contracture [Unknown]
  - Contusion [Unknown]

NARRATIVE: CASE EVENT DATE: 20210101
